FAERS Safety Report 5237525-5 (Version None)
Quarter: 2007Q1

REPORT INFORMATION
  Report Type: 
  Country: None (occurrence: None)
  Receive Date: 20070213
  Receipt Date: 20070202
  Transmission Date: 20070707
  Serious: Yes (Other)
  Sender: FDA-Public Use
  Company Number: CA-ELI_LILLY_AND_COMPANY-CA200611004773

PATIENT
  Age: 65 Year
  Sex: Male

DRUGS (3)
  1. CIALIS [Suspect]
     Indication: ERECTILE DYSFUNCTION
     Dosage: 20 MG, UNK
     Route: 048
     Dates: start: 20050101
  2. CIALIS [Suspect]
     Dosage: 10 MG, AS NEEDED
     Route: 048
     Dates: start: 20060101
  3. VIAGRA                                  /SWE/ [Concomitant]

REACTIONS (3)
  - HEADACHE [None]
  - NAUSEA [None]
  - UROGENITAL HAEMORRHAGE [None]
